FAERS Safety Report 7609005-0 (Version None)
Quarter: 2011Q3

REPORT INFORMATION
  Report Type: 
  Country: None (occurrence: None)
  Receive Date: 20110713
  Receipt Date: 20110713
  Transmission Date: 20111222
  Serious: Yes (Hospitalization, Disabling)
  Sender: FDA-Public Use
  Company Number: None

PATIENT
  Age: 62 Year
  Sex: Male
  Weight: 122 kg

DRUGS (30)
  1. CALCIUM GLUCONATE [Concomitant]
  2. LASIX [Concomitant]
  3. APIDRA [Concomitant]
  4. MULTI-VITAMIN [Concomitant]
  5. DEXTROSE [Concomitant]
  6. LACTULOSE MAGNESIUM OXIDE [Concomitant]
  7. METOPROLOL TARTRATE [Concomitant]
  8. PROPOFOL [Concomitant]
  9. VANCOMYSIN [Concomitant]
  10. FENTANYL [Concomitant]
  11. SODIUM BICARBONATE [Concomitant]
  12. SODIUM CHLORIDE [Concomitant]
  13. ERTAPENEM ONE GRAM MERCK [Suspect]
     Indication: CELLULITIS
     Dosage: ERTAPENEM Q24HOURS IV DRIP
     Route: 041
     Dates: start: 20110620, end: 20110701
  14. ERTAPENEM ONE GRAM MERCK [Suspect]
     Indication: OSTEOMYELITIS
     Dosage: ERTAPENEM Q24HOURS IV DRIP
     Route: 041
     Dates: start: 20110620, end: 20110701
  15. ERTAPENEM ONE GRAM MERCK [Suspect]
     Indication: ENTEROBACTER SEPSIS
     Dosage: ERTAPENEM Q24HOURS IV DRIP
     Route: 041
     Dates: start: 20110620, end: 20110701
  16. CLOTRIMAZOLE [Concomitant]
  17. HEPARIN [Concomitant]
  18. MIDAZOLAM HCL [Concomitant]
  19. PANTOPRAZOLE [Concomitant]
  20. LIPITOR [Concomitant]
  21. ACETAMINOPHEN [Concomitant]
  22. ASPIRIN [Concomitant]
  23. ADVAIR DISKUS 100/50 [Concomitant]
  24. INSULIN GLARGINE [Concomitant]
  25. MORPHINE [Concomitant]
  26. NOREPINEPHRINE BITARTRATE [Concomitant]
  27. ALBUMIN (HUMAN) [Concomitant]
  28. HYDROCOTRISONE [Concomitant]
  29. CLONIDINE [Concomitant]
  30. OXYCODONE HCL [Concomitant]

REACTIONS (3)
  - TREMOR [None]
  - MENTAL STATUS CHANGES [None]
  - CONVULSION [None]
